FAERS Safety Report 19162829 (Version 1)
Quarter: 2021Q2

REPORT INFORMATION
  Report Type: Spontaneous
  Country: DE (occurrence: DE)
  Receive Date: 20210421
  Receipt Date: 20210421
  Transmission Date: 20210717
  Serious: Yes (Other)
  Sender: FDA-Public Use
  Company Number: DE-PFIZER INC-2021403905

PATIENT
  Age: 36 Year
  Sex: Female
  Weight: 65 kg

DRUGS (2)
  1. SOBELIN [Suspect]
     Active Substance: CLINDAMYCIN HYDROCHLORIDE
     Indication: VULVOVAGINAL PRURITUS
     Dosage: PZN?06996070, 3X DAILY EVENINGS; APLICATOR END DATE GIVEN AS 28APR2021
     Route: 067
     Dates: start: 20210326
  2. SOBELIN [Suspect]
     Active Substance: CLINDAMYCIN HYDROCHLORIDE
     Indication: VULVOVAGINAL BURNING SENSATION

REACTIONS (4)
  - Off label use [Unknown]
  - Uterine haemorrhage [Recovering/Resolving]
  - Product use issue [Unknown]
  - Vulvovaginal rash [Recovering/Resolving]

NARRATIVE: CASE EVENT DATE: 20210326
